FAERS Safety Report 4353174-5 (Version None)
Quarter: 2004Q2

REPORT INFORMATION
  Report Type: 
  Country: None (occurrence: None)
  Receive Date: 20040504
  Receipt Date: 20040504
  Transmission Date: 20050107
  Serious: Yes (Hospitalization)
  Sender: FDA-Public Use
  Company Number: None

PATIENT
  Age: 70 Year
  Sex: Female
  Weight: 58.9676 kg

DRUGS (10)
  1. IRINOTECAN [Suspect]
     Indication: SMALL CELL LUNG CANCER STAGE UNSPECIFIED
     Dosage: 40 MG/M2 IV /** 60 MG/M2 IV
     Route: 042
     Dates: start: 20040210
  2. IRINOTECAN [Suspect]
     Indication: SMALL CELL LUNG CANCER STAGE UNSPECIFIED
     Dosage: 40 MG/M2 IV /** 60 MG/M2 IV
     Route: 042
     Dates: start: 20040217
  3. IRINOTECAN [Suspect]
     Indication: SMALL CELL LUNG CANCER STAGE UNSPECIFIED
     Dosage: 40 MG/M2 IV /** 60 MG/M2 IV
     Route: 042
     Dates: start: 20040309
  4. IRINOTECAN [Suspect]
     Indication: SMALL CELL LUNG CANCER STAGE UNSPECIFIED
     Dosage: 40 MG/M2 IV /** 60 MG/M2 IV
     Route: 042
     Dates: start: 20040316
  5. IRINOTECAN [Suspect]
     Indication: SMALL CELL LUNG CANCER STAGE UNSPECIFIED
     Dosage: 40 MG/M2 IV /** 60 MG/M2 IV
     Route: 042
     Dates: start: 20040419
  6. IRINOTECAN [Suspect]
     Indication: SMALL CELL LUNG CANCER STAGE UNSPECIFIED
     Dosage: 40 MG/M2 IV /** 60 MG/M2 IV
     Route: 042
     Dates: start: 20040426
  7. CISPLATIN [Suspect]
     Indication: SMALL CELL LUNG CANCER STAGE UNSPECIFIED
     Dosage: 60 MG/M2 IV
     Route: 042
     Dates: start: 20040210
  8. CISPLATIN [Suspect]
     Indication: SMALL CELL LUNG CANCER STAGE UNSPECIFIED
     Dosage: 60 MG/M2 IV
     Route: 042
     Dates: start: 20040309
  9. CISPLATIN [Suspect]
     Indication: SMALL CELL LUNG CANCER STAGE UNSPECIFIED
     Dosage: 60 MG/M2 IV
     Route: 042
     Dates: start: 20040419
  10. PEPCID [Concomitant]

REACTIONS (1)
  - DEHYDRATION [None]
